FAERS Safety Report 8187356 (Version 4)
Quarter: 2012Q4

REPORT INFORMATION
  Report Type: 
  Country: BR (occurrence: BR)
  Receive Date: 20111018
  Receipt Date: 20121008
  Transmission Date: 20130627
  Serious: Yes (Hospitalization, Other)
  Sender: FDA-Public Use
  Company Number: PHHY2011BR90705

PATIENT
  Sex: Female

DRUGS (2)
  1. SANDOSTATIN LAR [Suspect]
     Indication: ACROMEGALY
     Dosage: UNK UKN, UNK
     Route: 065
  2. CORTICOSTEROIDS [Concomitant]
     Dosage: UNK UKN, UNK

REACTIONS (15)
  - Asthenia [Not Recovered/Not Resolved]
  - Hypopituitarism [Not Recovered/Not Resolved]
  - Hormone level abnormal [Not Recovered/Not Resolved]
  - Disease progression [Not Recovered/Not Resolved]
  - Gait disturbance [Not Recovered/Not Resolved]
  - Depression [Unknown]
  - Amnesia [Not Recovered/Not Resolved]
  - Diarrhoea [Not Recovered/Not Resolved]
  - Abdominal distension [Not Recovered/Not Resolved]
  - Fatigue [Unknown]
  - Pain [Unknown]
  - Malaise [Unknown]
  - Nervousness [Not Recovered/Not Resolved]
  - Syncope [Not Recovered/Not Resolved]
  - Headache [Not Recovered/Not Resolved]
